FAERS Safety Report 6599855-4 (Version None)
Quarter: 2010Q1

REPORT INFORMATION
  Report Type: 
  Country: None (occurrence: None)
  Receive Date: 20100224
  Receipt Date: 20100218
  Transmission Date: 20100710
  Serious: Yes (Hospitalization, Other)
  Sender: FDA-Public Use
  Company Number: KR-BRISTOL-MYERS SQUIBB COMPANY-14953061

PATIENT
  Age: 59 Year
  Sex: Male
  Weight: 70 kg

DRUGS (3)
  1. CISPLATIN [Suspect]
     Indication: METASTATIC GASTRIC CANCER
     Route: 042
     Dates: start: 20090428
  2. SUNITINIB MALATE [Suspect]
     Indication: METASTATIC GASTRIC CANCER
     Dosage: 2WKS ON TREATMENT FOLLOWED BY 1 WK OFF TREATMENT(SCHEDULE 2/1);8TH CYCLE(22DEC09-05JAN2010)
     Route: 048
     Dates: start: 20090428
  3. XELODA [Suspect]
     Indication: METASTATIC GASTRIC CANCER
     Dosage: DAY 1 TO DAY 14 OF CYCLE. RECENT DOSE 1000MG
     Route: 048
     Dates: start: 20090428

REACTIONS (1)
  - PULMONARY EMBOLISM [None]
